FAERS Safety Report 18353796 (Version 6)
Quarter: 2020Q4

REPORT INFORMATION
  Report Type: Report from Study
  Country: US (occurrence: US)
  Receive Date: 20201007
  Receipt Date: 20201231
  Transmission Date: 20210114
  Serious: No
  Sender: FDA-Public Use
  Company Number: NVSC2020US268583

PATIENT
  Sex: Female

DRUGS (1)
  1. ENTRESTO [Suspect]
     Active Substance: SACUBITRIL\VALSARTAN
     Indication: PRODUCT USED FOR UNKNOWN INDICATION
     Dosage: UNK
     Route: 065
     Dates: start: 2018

REACTIONS (16)
  - Weight decreased [Unknown]
  - Fatigue [Unknown]
  - Weight increased [Unknown]
  - Cough [Unknown]
  - Dyspnoea [Unknown]
  - Back disorder [Unknown]
  - Chest pain [Unknown]
  - Blood glucose increased [Unknown]
  - Sinus disorder [Unknown]
  - Nausea [Unknown]
  - Oedema [Unknown]
  - Tenderness [Unknown]
  - Pallor [Unknown]
  - Contusion [Unknown]
  - Palpitations [Unknown]
  - Dizziness [Unknown]
